FAERS Safety Report 16722829 (Version 2)
Quarter: 2020Q2

REPORT INFORMATION
  Report Type: Spontaneous
  Country: US (occurrence: US)
  Receive Date: 20190821
  Receipt Date: 20200428
  Transmission Date: 20200713
  Serious: Yes (Other)
  Sender: FDA-Public Use
  Company Number: US-ASTRAZENECA-2019SF16250

PATIENT
  Sex: Male
  Weight: 75.8 kg

DRUGS (9)
  1. NEXIUM 24HR [Suspect]
     Active Substance: ESOMEPRAZOLE MAGNESIUM
     Route: 048
     Dates: start: 1990, end: 2000
  2. PRILOSEC [Suspect]
     Active Substance: OMEPRAZOLE MAGNESIUM
     Indication: GASTROOESOPHAGEAL REFLUX DISEASE
     Dosage: GENERIC
     Route: 048
     Dates: start: 2014
  3. TUMS [Concomitant]
     Active Substance: CALCIUM CARBONATE
  4. PRILOSEC [Suspect]
     Active Substance: OMEPRAZOLE MAGNESIUM
     Indication: GASTROOESOPHAGEAL REFLUX DISEASE
     Route: 048
     Dates: start: 1990, end: 2000
  5. PRILOSEC OTC [Suspect]
     Active Substance: OMEPRAZOLE MAGNESIUM
     Route: 048
     Dates: start: 1990, end: 2000
  6. PEPTO-BISMOL [Concomitant]
     Active Substance: BISMUTH SUBSALICYLATE
  7. NEXIUM [Suspect]
     Active Substance: ESOMEPRAZOLE MAGNESIUM
     Indication: FLATULENCE
     Route: 048
     Dates: start: 1990, end: 2000
  8. PROTONIX [Suspect]
     Active Substance: PANTOPRAZOLE SODIUM
     Indication: FLATULENCE
     Route: 065
  9. ROLAIDS [Suspect]
     Active Substance: CALCIUM CARBONATE\MAGNESIUM HYDROXIDE
     Route: 065

REACTIONS (3)
  - Chronic kidney disease [Not Recovered/Not Resolved]
  - Renal injury [Not Recovered/Not Resolved]
  - Renal cancer [Not Recovered/Not Resolved]

NARRATIVE: CASE EVENT DATE: 1997
